FAERS Safety Report 12172226 (Version 1)
Quarter: 2016Q1

REPORT INFORMATION
  Report Type: Spontaneous
  Country: FR (occurrence: FR)
  Receive Date: 20160311
  Receipt Date: 20160311
  Transmission Date: 20160526
  Serious: Yes (Other)
  Sender: FDA-Public Use
  Company Number: FR-GILEAD-2016-0201063

PATIENT
  Age: 80 Year
  Sex: Female

DRUGS (3)
  1. DACLATASVIR. [Concomitant]
     Active Substance: DACLATASVIR
  2. RIBAVIRINE [Concomitant]
     Active Substance: RIBAVIRIN
  3. SOFOSBUVIR [Suspect]
     Active Substance: SOFOSBUVIR
     Indication: PRODUCT USED FOR UNKNOWN INDICATION
     Dosage: UNK
     Route: 065

REACTIONS (5)
  - Retinal disorder [Unknown]
  - Lens dislocation [Unknown]
  - Unevaluable event [Unknown]
  - Cataract [Unknown]
  - Eye disorder [Unknown]
